FAERS Safety Report 24132309 (Version 1)
Quarter: 2024Q3

REPORT INFORMATION
  Report Type: Spontaneous
  Country: CN (occurrence: CN)
  Receive Date: 20240724
  Receipt Date: 20240724
  Transmission Date: 20241016
  Serious: Yes (Other)
  Sender: SANOFI AVENTIS
  Company Number: CN-SA-SAC20240722001658

PATIENT
  Age: 57 Year
  Sex: Male
  Weight: 59 kg

DRUGS (2)
  1. OXALIPLATIN [Suspect]
     Active Substance: OXALIPLATIN
     Indication: Chemotherapy
     Dosage: 220 MG, 1X
     Route: 041
     Dates: start: 20240711, end: 20240711
  2. OXALIPLATIN [Suspect]
     Active Substance: OXALIPLATIN
     Indication: Gastric cancer

REACTIONS (5)
  - Amaurosis [Recovered/Resolved]
  - Tremor [Recovered/Resolved]
  - Hypotension [Recovered/Resolved]
  - Defaecation urgency [Recovered/Resolved]
  - Anal incontinence [Recovered/Resolved]

NARRATIVE: CASE EVENT DATE: 20240711
